FAERS Safety Report 10558396 (Version 1)
Quarter: 2014Q4

REPORT INFORMATION
  Report Type: Spontaneous
  Country: US (occurrence: US)
  Receive Date: 20141031
  Receipt Date: 20141031
  Transmission Date: 20150529
  Serious: No
  Sender: FDA-Public Use
  Company Number: US-PFIZER INC-2014297237

PATIENT
  Age: 78 Year
  Sex: Female

DRUGS (1)
  1. ADVIL [Suspect]
     Active Substance: IBUPROFEN
     Indication: HEADACHE
     Dosage: UNK

REACTIONS (3)
  - Swollen tongue [Recovering/Resolving]
  - Glossodynia [Recovered/Resolved]
  - Foaming at mouth [Unknown]

NARRATIVE: CASE EVENT DATE: 20141023
